FAERS Safety Report 7319682-X (Version None)
Quarter: 2011Q1

REPORT INFORMATION
  Report Type: 
  Country: None (occurrence: None)
  Receive Date: 20110228
  Receipt Date: 20100817
  Transmission Date: 20110831
  Serious: No
  Sender: FDA-Public Use
  Company Number: A0872123A

PATIENT
  Age: 53 Year
  Sex: Female

DRUGS (2)
  1. LAMICTAL [Suspect]
     Dosage: 150MG PER DAY
     Route: 048
     Dates: start: 20100515
  2. PAXIL CR [Concomitant]
     Route: 048

REACTIONS (1)
  - RASH [None]
